FAERS Safety Report 7929099-2 (Version None)
Quarter: 2011Q4

REPORT INFORMATION
  Report Type: 
  Country: None (occurrence: None)
  Receive Date: 20111119
  Receipt Date: 20111114
  Transmission Date: 20120403
  Serious: Yes (Life-Threatening, Hospitalization, Other)
  Sender: FDA-Public Use
  Company Number: US-ASTRAZENECA-2011SE26247

PATIENT
  Age: 54 Year
  Sex: Male
  Weight: 141.5 kg

DRUGS (21)
  1. NIFEDIPINE [Concomitant]
     Dosage: Q12 H
  2. PLAVIX [Concomitant]
  3. ULTRACET [Concomitant]
     Dosage: 37.5/325 MG, EVERY 12 HOURS AS NEEDED
     Route: 048
  4. ASPIRIN [Concomitant]
  5. LANTUS [Concomitant]
     Indication: TYPE 2 DIABETES MELLITUS
     Dosage: 50 UNITS AM AND 23 UNITS PM
     Route: 058
  6. TRAVATAN [Concomitant]
     Dosage: ONE DROP BOTH EYE AT BEDTIME
  7. NIASPAN [Concomitant]
     Indication: HYPERLIPIDAEMIA
  8. REGLAN [Concomitant]
  9. STARLIX [Concomitant]
  10. PULMICORT FLEXHALER [Suspect]
     Dosage: AS NEEDED
     Route: 055
  11. NIASPAN [Concomitant]
  12. VYTORIN [Concomitant]
     Dosage: 10/40 MG AT BEDTIME
     Route: 048
  13. PULMICORT FLEXHALER [Suspect]
     Dosage: ONE PUFF, EVERY 12 HOURS
     Route: 055
  14. LISINOPRIL [Concomitant]
  15. BYETTA [Concomitant]
     Dosage: 5 UNITS QPM
  16. LOTRISONE [Concomitant]
  17. NIZATIDINE [Concomitant]
     Route: 048
  18. ACTOS [Concomitant]
     Indication: TYPE 2 DIABETES MELLITUS
  19. FLONASE [Concomitant]
     Dosage: TWO SPRAYS NARE BOTH DAILY
  20. LORATADINE [Concomitant]
  21. NOVOLIN R [Concomitant]
     Dosage: 15 UNITS IN THE AM 15 UNITS AT NOON, 15 UNITS PM AND 15 UNITS HS
     Route: 058

REACTIONS (16)
  - CORONARY ARTERY DISEASE [None]
  - CHEST PAIN [None]
  - DYSPEPSIA [None]
  - NAUSEA [None]
  - ERUCTATION [None]
  - COLONIC POLYP [None]
  - ACUTE MYOCARDIAL INFARCTION [None]
  - BRONCHITIS CHRONIC [None]
  - ACUTE CORONARY SYNDROME [None]
  - BACK PAIN [None]
  - CHEST DISCOMFORT [None]
  - DYSPNOEA [None]
  - ABDOMINAL PAIN UPPER [None]
  - CARDIOMEGALY [None]
  - PEPTIC ULCER HAEMORRHAGE [None]
  - HYPERHIDROSIS [None]
